FAERS Safety Report 4269833-9 (Version None)
Quarter: 2004Q1

REPORT INFORMATION
  Report Type: 
  Country: None (occurrence: None)
  Receive Date: 20040112
  Receipt Date: 20031230
  Transmission Date: 20041129
  Serious: Yes (Other)
  Sender: FDA-Public Use
  Company Number: HQWYE061006JAN04

PATIENT
  Age: 38 Year
  Sex: Female
  Weight: 53.57 kg

DRUGS (4)
  1. RAPAMUNE [Suspect]
     Indication: MULTIPLE SCLEROSIS
     Dosage: 2 MG 1X  PER 1 DAY, ORAL
     Route: 048
     Dates: start: 20030818, end: 20031222
  2. DIPYRIDAMOLE [Concomitant]
  3. VITAMIN C (ASCORBIC ACID) [Concomitant]
  4. SULFACETAMIDE SODIUM [Concomitant]

REACTIONS (2)
  - MENSTRUAL DISORDER [None]
  - PROGRESSIVE MULTIPLE SCLEROSIS [None]
